FAERS Safety Report 10264723 (Version 1)
Quarter: 2014Q2

REPORT INFORMATION
  Report Type: Spontaneous
  Country: US (occurrence: None)
  Receive Date: 20140625
  Receipt Date: 20140625
  Transmission Date: 20141212
  Serious: Yes (Other)
  Sender: FDA-Public Use
  Company Number: None

PATIENT
  Age: 47 Year
  Sex: Male

DRUGS (1)
  1. COPAXONE [Suspect]
     Indication: MULTIPLE SCLEROSIS
     Dosage: 20 MG QD SUBCUTANEOUS
     Route: 058
     Dates: start: 20130215, end: 20140606

REACTIONS (2)
  - Nuclear magnetic resonance imaging abnormal [None]
  - Drug ineffective [None]
